FAERS Safety Report 6542910-5 (Version None)
Quarter: 2010Q1

REPORT INFORMATION
  Report Type: 
  Country: None (occurrence: None)
  Receive Date: 20100120
  Receipt Date: 20100113
  Transmission Date: 20100710
  Serious: Yes (Hospitalization)
  Sender: FDA-Public Use
  Company Number: GB-BAYER-201011738GPV

PATIENT
  Sex: Male

DRUGS (1)
  1. BETAFERON [Suspect]
     Indication: DRUG USE FOR UNKNOWN INDICATION
     Dosage: TOTAL DAILY DOSE: 750 ?G
     Route: 058

REACTIONS (1)
  - NO ADVERSE EVENT [None]
